FAERS Safety Report 11175892 (Version 2)
Quarter: 2015Q2

REPORT INFORMATION
  Report Type: Spontaneous
  Country: SI (occurrence: SI)
  Receive Date: 20150609
  Receipt Date: 20150612
  Transmission Date: 20150821
  Serious: Yes (Death, Hospitalization)
  Sender: FDA-Public Use
  Company Number: PHHY2015SI068155

PATIENT
  Age: 72 Year
  Sex: Female
  Weight: 70 kg

DRUGS (7)
  1. DIAPREL [Concomitant]
     Active Substance: GLICLAZIDE
     Indication: TYPE 2 DIABETES MELLITUS
     Dosage: 60 MG
     Route: 048
     Dates: start: 2014
  2. GLUCOPHAGE [Concomitant]
     Active Substance: METFORMIN HYDROCHLORIDE
     Indication: TYPE 2 DIABETES MELLITUS
     Dosage: 1000 MG
     Route: 048
     Dates: start: 2014
  3. SORVASTA [Concomitant]
     Indication: HYPERLIPIDAEMIA
     Dosage: 10 MG, UNK
     Route: 048
     Dates: start: 2014
  4. FRAGMIN [Concomitant]
     Active Substance: DALTEPARIN SODIUM
     Indication: DEEP VEIN THROMBOSIS
     Dosage: 5000 IE
     Route: 058
     Dates: start: 2005
  5. AFINITOR [Suspect]
     Active Substance: EVEROLIMUS
     Indication: BREAST CANCER METASTATIC
     Dosage: 10 MG
     Route: 048
     Dates: start: 20150226, end: 20150523
  6. AROMASIN [Concomitant]
     Active Substance: EXEMESTANE
     Indication: BREAST CANCER
     Dosage: 25 MG
     Route: 048
     Dates: start: 20150226
  7. ENAP HL [Concomitant]
     Indication: HYPERTENSION
     Dosage: 22.5 MG (ENA 10, 12 HYDRO)
     Route: 048

REACTIONS (18)
  - Inflammatory marker increased [Unknown]
  - C-reactive protein increased [Unknown]
  - Procalcitonin increased [Unknown]
  - Eastern Cooperative Oncology Group performance status [Unknown]
  - Dehydration [Unknown]
  - General physical health deterioration [Unknown]
  - Dyspnoea [Unknown]
  - Blood urea increased [Unknown]
  - Oxygen saturation decreased [Unknown]
  - Confusional state [Unknown]
  - Blood pressure diastolic increased [Unknown]
  - Blood glucose decreased [Unknown]
  - Blood creatinine increased [Unknown]
  - Diarrhoea [Unknown]
  - No therapeutic response [Unknown]
  - Death [Fatal]
  - Restlessness [Unknown]
  - Vomiting [Unknown]

NARRATIVE: CASE EVENT DATE: 20150525
